FAERS Safety Report 7836539-6 (Version None)
Quarter: 2011Q4

REPORT INFORMATION
  Report Type: 
  Country: None (occurrence: None)
  Receive Date: 20111024
  Receipt Date: 20110728
  Transmission Date: 20120403
  Serious: No
  Sender: FDA-Public Use
  Company Number: US-BAYER-2011-069297

PATIENT
  Sex: Female

DRUGS (2)
  1. TYLENOL PM [Concomitant]
  2. ALEVE (CAPLET) [Suspect]
     Route: 048

REACTIONS (2)
  - PAIN [None]
  - AGITATION [None]
